FAERS Safety Report 9163694 (Version 2)
Quarter: 2013Q2

REPORT INFORMATION
  Report Type: Report from Study
  Country: US (occurrence: US)
  Receive Date: 20130314
  Receipt Date: 20130429
  Transmission Date: 20140414
  Serious: Yes (Other)
  Sender: FDA-Public Use
  Company Number: US-ABBOTT-13P-163-1058851-00

PATIENT
  Age: 48 Year
  Sex: Female
  Weight: 58.11 kg

DRUGS (3)
  1. HUMIRA [Suspect]
     Indication: PSORIATIC ARTHROPATHY
     Dates: start: 2009, end: 20130128
  2. HUMIRA [Suspect]
     Indication: PSORIASIS
  3. ADVIL [Concomitant]
     Indication: PRODUCT USED FOR UNKNOWN INDICATION

REACTIONS (3)
  - Antiphospholipid antibodies positive [Not Recovered/Not Resolved]
  - Oral disorder [Not Recovered/Not Resolved]
  - Hepatic lesion [Not Recovered/Not Resolved]
